FAERS Safety Report 11170708 (Version 1)
Quarter: 2015Q2

REPORT INFORMATION
  Report Type: Spontaneous
  Country: NO (occurrence: NO)
  Receive Date: 20150608
  Receipt Date: 20150608
  Transmission Date: 20150821
  Serious: Yes (Hospitalization)
  Sender: FDA-Public Use
  Company Number: NO-ASTRAZENECA-2015SE53901

PATIENT
  Age: 35 Year
  Sex: Male

DRUGS (6)
  1. ALLOPUR [Concomitant]
     Active Substance: ALLOPURINOL
     Route: 048
  2. ZANIDIP [Concomitant]
     Active Substance: LERCANIDIPINE HYDROCHLORIDE
     Route: 048
  3. EZETROL [Concomitant]
     Active Substance: EZETIMIBE
     Route: 048
  4. RENITEC COMP [Concomitant]
     Route: 048
  5. ATACAND [Suspect]
     Active Substance: CANDESARTAN CILEXETIL
     Indication: HYPERTENSION
     Route: 048
  6. PREDNISOLON [Concomitant]
     Active Substance: PREDNISOLONE
     Route: 048

REACTIONS (5)
  - Syncope [Recovered/Resolved]
  - Blood pressure decreased [Unknown]
  - Dizziness [Recovered/Resolved]
  - Product substitution issue [Unknown]
  - Visual impairment [Recovered/Resolved]
